FAERS Safety Report 5129073-8 (Version None)
Quarter: 2006Q4

REPORT INFORMATION
  Report Type: 
  Country: None (occurrence: None)
  Receive Date: 20061011
  Receipt Date: 20061005
  Transmission Date: 20070319
  Serious: Yes (Other)
  Sender: FDA-Public Use
  Company Number: OSCN-PR-0610L-0289

PATIENT
  Age: 56 Year
  Sex: Female

DRUGS (7)
  1. OMNISCAN [Suspect]
     Indication: HYPERTENSIVE CRISIS
     Dosage: 30 ML, SINGLE DOSE, I.V.
     Route: 042
  2. GADOPENTETATE DIMEGLUMINE (MAGNEVIST) [Concomitant]
  3. VALSARTAN [Concomitant]
  4. HYDROCHLOROTHIAZIDE [Concomitant]
  5. GLIMEPIRIDE [Concomitant]
  6. METFORMIN HYDROCHLORIDE [Concomitant]
  7. AMLODIPINE BESYLATE [Concomitant]

REACTIONS (1)
  - RENAL TUBULAR NECROSIS [None]
